FAERS Safety Report 12210685 (Version 7)
Quarter: 2020Q3

REPORT INFORMATION
  Report Type: Report from Study
  Country: GB (occurrence: GB)
  Receive Date: 20160325
  Receipt Date: 20181116
  Transmission Date: 20201104
  Serious: Yes (Hospitalization)
  Sender: FDA-Public Use
  Company Number: GB-JNJFOC-20160304330

PATIENT
  Age: 72 Year
  Sex: Female
  Weight: 82 kg

DRUGS (4)
  1. DARATUMUMAB [Suspect]
     Active Substance: DARATUMUMAB
     Route: 042
  2. DARATUMUMAB [Suspect]
     Active Substance: DARATUMUMAB
     Indication: PLASMA CELL MYELOMA
     Dosage: CYCLE 1 DAY 8 ON 04?MAR?2016 AND CYCLE 1 DAY 15 ON 10?MAR?2016
     Route: 042
     Dates: start: 20160226, end: 20160310
  3. LENALIDOMIDE [Suspect]
     Active Substance: LENALIDOMIDE
     Indication: PLASMA CELL MYELOMA
     Route: 048
     Dates: start: 20160226
  4. DEXAMETHASONE. [Suspect]
     Active Substance: DEXAMETHASONE
     Indication: PLASMA CELL MYELOMA
     Dosage: CYCLE 1 DAY 8 ON 04?MAR?2016 AND CYCLE 1 DAY 15 ON 10?MAR?2016
     Route: 042
     Dates: start: 20160226

REACTIONS (2)
  - Urinary tract infection [Recovered/Resolved]
  - Pyrexia [Recovered/Resolved]

NARRATIVE: CASE EVENT DATE: 20160229
